FAERS Safety Report 4960825-0 (Version None)
Quarter: 2006Q2

REPORT INFORMATION
  Report Type: 
  Country: None (occurrence: None)
  Receive Date: 20060403
  Receipt Date: 20051019
  Transmission Date: 20061013
  Serious: Yes (Hospitalization)
  Sender: FDA-Public Use
  Company Number: IE-ROCHE-422557

PATIENT
  Sex: Female

DRUGS (1)
  1. ROACCUTANE [Suspect]
     Indication: ACNE
     Route: 048
     Dates: start: 19890906

REACTIONS (8)
  - ACUTE PSYCHOSIS [None]
  - AGGRESSION [None]
  - ANGER [None]
  - DEPRESSION [None]
  - PANIC DISORDER [None]
  - PANIC REACTION [None]
  - SCHIZOPHRENIA [None]
  - SUICIDAL IDEATION [None]
